FAERS Safety Report 6932090-6 (Version None)
Quarter: 2010Q3

REPORT INFORMATION
  Report Type: 
  Country: None (occurrence: None)
  Receive Date: 20100819
  Receipt Date: 20100806
  Transmission Date: 20110219
  Serious: Yes (Other)
  Sender: FDA-Public Use
  Company Number: A0862618A

PATIENT
  Sex: Female
  Weight: 99.1 kg

DRUGS (8)
  1. AVANDIA [Suspect]
     Dosage: 4MG TWICE PER DAY
     Route: 048
     Dates: start: 20010111, end: 20070101
  2. AVANDAMET [Suspect]
  3. LANOXIN [Concomitant]
  4. LASIX [Concomitant]
  5. ALBUTEROL [Concomitant]
  6. SINGULAIR [Concomitant]
  7. ADVAIR DISKUS 100/50 [Concomitant]
  8. ALTACE [Concomitant]

REACTIONS (3)
  - CARDIAC FAILURE CONGESTIVE [None]
  - CONDITION AGGRAVATED [None]
  - FLUID IMBALANCE [None]
